FAERS Safety Report 6121883-3 (Version None)
Quarter: 2009Q1

REPORT INFORMATION
  Report Type: 
  Country: None (occurrence: None)
  Receive Date: 20090313
  Receipt Date: 20090310
  Transmission Date: 20090719
  Serious: Yes (Life-Threatening, Hospitalization)
  Sender: FDA-Public Use
  Company Number: 2009-192108-NL

PATIENT
  Age: 64 Year
  Sex: Male

DRUGS (5)
  1. ROCURONIUM BROMIDE [Suspect]
     Indication: NEUROMUSCULAR BLOCKADE
     Dosage: INTRAVENOUS (NOS)
     Route: 036
     Dates: start: 20090213, end: 20090213
  2. LIGNOCAINE GEL WITH CHLORHEXIDINE [Suspect]
     Indication: INDWELLING CATHETER MANAGEMENT
     Dates: start: 20090213, end: 20090213
  3. PROPOFOL [Concomitant]
  4. ADRENALINE [Concomitant]
  5. MIDAZOLAM HCL [Concomitant]

REACTIONS (8)
  - BLOOD PRESSURE DECREASED [None]
  - CARDIAC ARREST [None]
  - DOCUMENTED HYPERSENSITIVITY TO ADMINISTERED DRUG [None]
  - INSTILLATION SITE REACTION [None]
  - RASH MACULAR [None]
  - RASH PRURITIC [None]
  - SWELLING FACE [None]
  - URTICARIA [None]
